FAERS Safety Report 19795297 (Version 1)
Quarter: 2021Q3

REPORT INFORMATION
  Report Type: Spontaneous
  Country: FI (occurrence: FI)
  Receive Date: 20210907
  Receipt Date: 20210907
  Transmission Date: 20211014
  Serious: Yes (Life-Threatening)
  Sender: FDA-Public Use
  Company Number: FI-B.I. PHARMACEUTICALS,INC./RIDGEFIELD-2021-BI-125431

PATIENT
  Age: 97 Year
  Sex: Female

DRUGS (2)
  1. PREDNISON [Suspect]
     Active Substance: PREDNISONE
     Indication: MYALGIA
     Dosage: 5,MG,DAILY
     Route: 048
  2. PRADAXA [Suspect]
     Active Substance: DABIGATRAN ETEXILATE MESYLATE
     Indication: CEREBROVASCULAR ACCIDENT PROPHYLAXIS
     Dosage: 220,MG,DAILY
     Route: 048
     Dates: start: 20210614

REACTIONS (3)
  - Fall [Recovering/Resolving]
  - Chest pain [Recovering/Resolving]
  - Anaemia [Recovering/Resolving]

NARRATIVE: CASE EVENT DATE: 202106
